FAERS Safety Report 26000828 (Version 1)
Quarter: 2025Q4

REPORT INFORMATION
  Report Type: Spontaneous
  Country: PR (occurrence: PR)
  Receive Date: 20251105
  Receipt Date: 20251105
  Transmission Date: 20260118
  Serious: Yes (Other)
  Sender: ANI
  Company Number: PR-ANIPHARMA-2025-PR-000086

PATIENT
  Age: 40 Year
  Sex: Male
  Weight: 78.93 kg

DRUGS (4)
  1. CORTICOTROPIN [Suspect]
     Active Substance: CORTICOTROPIN
     Indication: Multiple sclerosis
     Dosage: 80IU DAILY SUBCUTANEOUS
     Route: 058
     Dates: end: 20250815
  2. AMPYRA ORAL TABLET EXTENDED RELEASE 10MG [Concomitant]
     Route: 048
  3. MODAFINIL ORAL TABLET 200MG [Concomitant]
     Route: 048
  4. KH-9 [Concomitant]

REACTIONS (2)
  - Multiple sclerosis [Unknown]
  - Drug ineffective [Unknown]

NARRATIVE: CASE EVENT DATE: 20250815
